FAERS Safety Report 17704973 (Version 1)
Quarter: 2020Q2

REPORT INFORMATION
  Report Type: Spontaneous
  Country: UY (occurrence: UY)
  Receive Date: 20200424
  Receipt Date: 20200424
  Transmission Date: 20200714
  Serious: Yes (Death, Other)
  Sender: FDA-Public Use
  Company Number: UY-ROCHE-2566000

PATIENT
  Age: 60 Year
  Sex: Female

DRUGS (1)
  1. MABTHERA [Suspect]
     Active Substance: RITUXIMAB
     Indication: ACQUIRED EPIDERMOLYSIS BULLOSA
     Route: 065

REACTIONS (8)
  - Intentional product use issue [Unknown]
  - Hypotension [Unknown]
  - Rash maculo-papular [Recovering/Resolving]
  - Multiple organ dysfunction syndrome [Unknown]
  - Sepsis [Fatal]
  - Hypersensitivity [Unknown]
  - Off label use [Unknown]
  - Dehydration [Unknown]

NARRATIVE: CASE EVENT DATE: 20200328
